FAERS Safety Report 9422687 (Version 1)
Quarter: 2013Q3

REPORT INFORMATION
  Report Type: Spontaneous
  Country: US (occurrence: US)
  Receive Date: 20130726
  Receipt Date: 20130726
  Transmission Date: 20140515
  Serious: No
  Sender: FDA-Public Use
  Company Number: US-MYLANLABS-2012S1020849

PATIENT
  Age: 62 Year
  Sex: Female

DRUGS (3)
  1. CLONIDINE HYDROCHLORIDE [Suspect]
     Indication: BLOOD PRESSURE INCREASED
     Dosage: PENDING HER BLOOD PRESSURE RESULT
     Route: 048
     Dates: start: 201207
  2. CLONIDINE HYDROCHLORIDE [Suspect]
     Indication: BLOOD PRESSURE INCREASED
     Dosage: PENDING HER BLOOD PRESSURE RESULT
     Route: 048
     Dates: start: 201207
  3. METOPROLOL TARTRATE AND HYDROCHLOROTHIAZIDE TABLETS, USP [Concomitant]
     Indication: BLOOD PRESSURE INCREASED

REACTIONS (2)
  - Abdominal pain [Not Recovered/Not Resolved]
  - Diarrhoea [Not Recovered/Not Resolved]
